FAERS Safety Report 8134781-0 (Version None)
Quarter: 2012Q1

REPORT INFORMATION
  Report Type: 
  Country: None (occurrence: None)
  Receive Date: 20120214
  Receipt Date: 20120208
  Transmission Date: 20120608
  Serious: No
  Sender: FDA-Public Use
  Company Number: US-PFIZER INC-2012035016

PATIENT
  Sex: Female
  Weight: 47.166 kg

DRUGS (7)
  1. LYRICA [Suspect]
  2. FOLBIC [Concomitant]
     Dosage: UNK
  3. POTASSIUM [Concomitant]
     Dosage: UNK
  4. LYRICA [Suspect]
     Indication: NEUROPATHY PERIPHERAL
     Dosage: 75 MG, 2X/DAY
     Route: 048
     Dates: start: 20090101, end: 20120208
  5. TEMAZEPAM [Concomitant]
     Dosage: UNK
  6. DOXEPIN [Concomitant]
     Dosage: UNK
  7. LYRICA [Suspect]

REACTIONS (6)
  - BLOOD CHOLESTEROL INCREASED [None]
  - DEPRESSION [None]
  - PAIN [None]
  - BLOOD CALCIUM INCREASED [None]
  - WHITE BLOOD CELL COUNT DECREASED [None]
  - BLOOD HOMOCYSTEINE INCREASED [None]
